FAERS Safety Report 9507521 (Version 1)
Quarter: 2013Q3

REPORT INFORMATION
  Report Type: Spontaneous
  Country: US (occurrence: None)
  Receive Date: 20130904
  Receipt Date: 20130904
  Transmission Date: 20140515
  Serious: Yes (Other)
  Sender: FDA-Public Use
  Company Number: NSR_01239_2013

PATIENT
  Age: 76 Year
  Sex: Female

DRUGS (4)
  1. VENLAFAXINE [Suspect]
     Indication: CATAPLEXY
     Dosage: (75 MG [DAILY]). ([INCREASED DOSE]), (DF)?(UNKNOWN UNTIL NOT CONTINUING), (UNKNOWN UNTIL NOT CONTINUING), (UNKNOWN)
  2. SODIUM OXYBATE [Concomitant]
  3. LISINOPRIL [Concomitant]
  4. FLUOXETINE [Concomitant]

REACTIONS (9)
  - Hypertension [None]
  - Gastroenteritis [None]
  - Vomiting [None]
  - Emotional disorder [None]
  - Waxy flexibility [None]
  - Condition aggravated [None]
  - Hallucination [None]
  - Drug ineffective [None]
  - Drug withdrawal syndrome [None]
